FAERS Safety Report 7020029-7 (Version None)
Quarter: 2010Q3

REPORT INFORMATION
  Report Type: 
  Country: None (occurrence: None)
  Receive Date: 20100929
  Receipt Date: 20100917
  Transmission Date: 20110219
  Serious: Yes (Other)
  Sender: FDA-Public Use
  Company Number: DK-JNJFOC-20100906603

PATIENT
  Age: 29 Year
  Sex: Female

DRUGS (4)
  1. REMICADE [Suspect]
     Indication: CROHN'S DISEASE
     Dosage: 18TH INFUSION
     Route: 042
  2. REMICADE [Suspect]
     Dosage: THERAPY FOR SEVERAL YEARS
     Route: 042
  3. PREDNISONE [Concomitant]
     Indication: PREMEDICATION
  4. SOLU-MEDROL [Concomitant]
     Indication: PREMEDICATION
     Route: 042

REACTIONS (8)
  - CONFUSIONAL STATE [None]
  - CYANOSIS [None]
  - DIZZINESS [None]
  - DYSPNOEA [None]
  - FEELING HOT [None]
  - FLUSHING [None]
  - INFUSION RELATED REACTION [None]
  - SWOLLEN TONGUE [None]
